FAERS Safety Report 22298156 (Version 10)
Quarter: 2023Q4

REPORT INFORMATION
  Report Type: Report from Study
  Country: US (occurrence: US)
  Receive Date: 20230509
  Receipt Date: 20231218
  Transmission Date: 20240110
  Serious: No
  Sender: FDA-Public Use
  Company Number: US-002147023-NVSC2023US099938

PATIENT
  Age: 65 Year
  Sex: Male

DRUGS (1)
  1. KESIMPTA [Suspect]
     Active Substance: OFATUMUMAB
     Indication: Relapsing multiple sclerosis
     Dosage: 20 MG, QMO
     Route: 058
     Dates: start: 20230307

REACTIONS (4)
  - Dizziness postural [Unknown]
  - Balance disorder [Unknown]
  - Inappropriate schedule of product administration [Unknown]
  - Product supply issue [Unknown]

NARRATIVE: CASE EVENT DATE: 20230501
